FAERS Safety Report 9796226 (Version 2)
Quarter: 2014Q1

REPORT INFORMATION
  Report Type: Spontaneous
  Country: FR (occurrence: FR)
  Receive Date: 20140103
  Receipt Date: 20140103
  Transmission Date: 20141002
  Serious: Yes (Life-Threatening, Hospitalization)
  Sender: FDA-Public Use
  Company Number: FR-JNJFOC-20131212189

PATIENT
  Age: 86 Year
  Sex: Female

DRUGS (9)
  1. XARELTO [Suspect]
     Indication: PRODUCT USED FOR UNKNOWN INDICATION
     Route: 048
     Dates: start: 20131021, end: 20131105
  2. ZYMADUO [Concomitant]
     Route: 002
  3. CONTRAMAL [Concomitant]
     Route: 048
  4. DAFALGAN [Concomitant]
     Route: 048
  5. GLICLAZIDE [Concomitant]
     Route: 048
  6. APROVEL [Concomitant]
     Route: 048
  7. EUPANTOL [Concomitant]
     Route: 048
  8. SEROPLEX [Concomitant]
     Route: 048
  9. ZOPICLONE [Concomitant]
     Indication: INSOMNIA
     Route: 048

REACTIONS (2)
  - Rectal haemorrhage [Recovered/Resolved]
  - Acute coronary syndrome [Recovered/Resolved with Sequelae]
